FAERS Safety Report 4549009-8 (Version None)
Quarter: 2005Q1

REPORT INFORMATION
  Report Type: 
  Country: None (occurrence: None)
  Receive Date: 20050110
  Receipt Date: 20050103
  Transmission Date: 20050727
  Serious: Yes (Other)
  Sender: FDA-Public Use
  Company Number: CA-MERCK-0501CAN00008

PATIENT
  Sex: Female

DRUGS (2)
  1. VIOXX [Suspect]
     Indication: ARTHRALGIA
     Route: 048
     Dates: start: 20010101, end: 20031201
  2. ASPIRIN [Concomitant]
     Indication: HEADACHE
     Route: 065

REACTIONS (2)
  - CARDIAC DISORDER [None]
  - DYSPNOEA [None]
